FAERS Safety Report 15983193 (Version 2)
Quarter: 2019Q1

REPORT INFORMATION
  Report Type: Report from Study
  Country: None (occurrence: CA)
  Receive Date: 20190220
  Receipt Date: 20190226
  Transmission Date: 20190418
  Serious: Yes (Other)
  Sender: FDA-Public Use
  Company Number: CA-ABBVIE-19K-028-2668873-00

PATIENT
  Sex: Female

DRUGS (2)
  1. HUMIRA [Suspect]
     Active Substance: ADALIMUMAB
     Indication: CROHN^S DISEASE
     Route: 058
     Dates: start: 20170306, end: 20190120
  2. HUMIRA [Suspect]
     Active Substance: ADALIMUMAB
     Route: 058
     Dates: start: 2019

REACTIONS (16)
  - Adhesion [Unknown]
  - Ear disorder [Not Recovered/Not Resolved]
  - Abdominal pain [Unknown]
  - Eye disorder [Not Recovered/Not Resolved]
  - Cataract [Not Recovered/Not Resolved]
  - Faeces soft [Unknown]
  - General physical health deterioration [Unknown]
  - Abdominal distension [Unknown]
  - Eye infection viral [Not Recovered/Not Resolved]
  - Sinus disorder [Not Recovered/Not Resolved]
  - Arthralgia [Unknown]
  - Nausea [Unknown]
  - Diarrhoea [Unknown]
  - Pharyngeal disorder [Not Recovered/Not Resolved]
  - Aphthous ulcer [Unknown]
  - Effusion [Not Recovered/Not Resolved]
